FAERS Safety Report 10218557 (Version 1)
Quarter: 2014Q2

REPORT INFORMATION
  Report Type: Spontaneous
  Country: ES (occurrence: ES)
  Receive Date: 20140605
  Receipt Date: 20140605
  Transmission Date: 20141212
  Serious: Yes (Hospitalization)
  Sender: FDA-Public Use
  Company Number: ES-ROXANE LABORATORIES, INC.-2014-RO-00833RO

PATIENT
  Age: 35 Year
  Sex: Female

DRUGS (1)
  1. RISPERIDONE [Suspect]
     Indication: PSYCHOTIC DISORDER
     Dosage: 9 MG
     Route: 065

REACTIONS (3)
  - Psychotic behaviour [Recovered/Resolved]
  - Amenorrhoea [Recovered/Resolved]
  - Extrapyramidal disorder [Unknown]
